FAERS Safety Report 13177365 (Version 1)
Quarter: 2017Q1

REPORT INFORMATION
  Report Type: Report from Study
  Country: US (occurrence: US)
  Receive Date: 20170201
  Receipt Date: 20170201
  Transmission Date: 20170428
  Serious: Yes (Other)
  Sender: FDA-Public Use
  Company Number: US-EXELIXIS-CABO-16005988

PATIENT
  Age: 59 Year
  Sex: Female
  Weight: 77.8 kg

DRUGS (7)
  1. COMETRIQ [Suspect]
     Active Substance: CABOZANTINIB S-MALATE
     Dosage: 140 MG, QD
     Route: 048
     Dates: start: 20160131, end: 2016
  2. THYROID [Concomitant]
     Active Substance: LEVOTHYROXINE\LIOTHYRONINE
  3. COMETRIQ [Suspect]
     Active Substance: CABOZANTINIB S-MALATE
     Indication: BONE CANCER
     Dosage: 20 MG, QD
     Route: 048
     Dates: start: 20160128, end: 20160130
  4. COMETRIQ [Suspect]
     Active Substance: CABOZANTINIB S-MALATE
     Dosage: 80 MG, QD
     Route: 048
     Dates: start: 201607
  5. ^HIGH BLOOD PRESSURE MEDS^ [Concomitant]
  6. ELIQUIS [Concomitant]
     Active Substance: APIXABAN
  7. MORPHINE [Concomitant]
     Active Substance: MORPHINE

REACTIONS (25)
  - Decreased appetite [Not Recovered/Not Resolved]
  - Nausea [Not Recovered/Not Resolved]
  - Arthralgia [Unknown]
  - Vomiting [Not Recovered/Not Resolved]
  - Abdominal pain upper [Unknown]
  - Feeling abnormal [Recovering/Resolving]
  - Ageusia [Unknown]
  - Accidental underdose [Recovered/Resolved]
  - Dyspnoea [Unknown]
  - Peripheral swelling [Unknown]
  - Off label use [Unknown]
  - Fatigue [Not Recovered/Not Resolved]
  - Procedural pain [Unknown]
  - Blood pressure increased [Not Recovered/Not Resolved]
  - Dry mouth [Unknown]
  - Gastrooesophageal reflux disease [Unknown]
  - Insomnia [Not Recovered/Not Resolved]
  - Oral pain [Unknown]
  - Flushing [Unknown]
  - Asthenia [Not Recovered/Not Resolved]
  - Depression [Recovering/Resolving]
  - Diarrhoea [Not Recovered/Not Resolved]
  - Malignant neoplasm progression [Unknown]
  - Rash pruritic [Unknown]
  - Weight decreased [Not Recovered/Not Resolved]

NARRATIVE: CASE EVENT DATE: 20160128
